FAERS Safety Report 12047890 (Version 2)
Quarter: 2016Q1

REPORT INFORMATION
  Report Type: Spontaneous
  Country: FR (occurrence: FR)
  Receive Date: 20160208
  Receipt Date: 20160224
  Transmission Date: 20160526
  Serious: Yes (Hospitalization)
  Sender: FDA-Public Use
  Company Number: FR-SA-2016SA018983

PATIENT
  Age: 76 Year
  Sex: Male

DRUGS (26)
  1. LEVETIRACETAM. [Suspect]
     Active Substance: LEVETIRACETAM
     Route: 065
     Dates: start: 20150529, end: 20150617
  2. AUGMENTIN [Concomitant]
     Active Substance: AMOXICILLIN\CLAVULANATE POTASSIUM
  3. NOREPINEPHRINE [Concomitant]
     Active Substance: NOREPINEPHRINE\NOREPINEPHRINE BITARTRATE
  4. SALBUTAMOL [Concomitant]
     Active Substance: ALBUTEROL
  5. NIMBEX [Concomitant]
     Active Substance: CISATRACURIUM BESYLATE
  6. URAPIDIL [Concomitant]
     Active Substance: URAPIDIL
  7. FLUCONAZOLE. [Concomitant]
     Active Substance: FLUCONAZOLE
  8. CLONIDINE HYDROCHLORIDE. [Concomitant]
     Active Substance: CLONIDINE HYDROCHLORIDE
  9. AMIODARONE [Suspect]
     Active Substance: AMIODARONE
     Route: 065
  10. LINEZOLID. [Concomitant]
     Active Substance: LINEZOLID
  11. PANTOPRAZOLE [Suspect]
     Active Substance: PANTOPRAZOLE SODIUM
     Route: 048
     Dates: start: 20150528, end: 20150616
  12. TIENAM [Suspect]
     Active Substance: CILASTATIN SODIUM\IMIPENEM
     Indication: ALVEOLITIS ALLERGIC
     Route: 042
     Dates: start: 20150613, end: 20150616
  13. METOCLOPRAMIDE. [Concomitant]
     Active Substance: METOCLOPRAMIDE
  14. TAZOCILLINE [Concomitant]
     Active Substance: PIPERACILLIN SODIUM\TAZOBACTAM SODIUM
  15. CIFLOX [Concomitant]
     Active Substance: CIPROFLOXACIN
  16. ATROVENT [Concomitant]
     Active Substance: IPRATROPIUM BROMIDE
  17. PROPOFOL. [Concomitant]
     Active Substance: PROPOFOL
  18. AMIODARONE [Suspect]
     Active Substance: AMIODARONE
     Route: 065
     Dates: start: 20150620, end: 20150623
  19. LASILIX [Suspect]
     Active Substance: FUROSEMIDE
     Route: 042
     Dates: start: 20150609, end: 20150616
  20. RIVOTRIL [Concomitant]
     Active Substance: CLONAZEPAM
  21. HEPARIN CHOAY [Suspect]
     Active Substance: HEPARIN SODIUM
     Route: 042
     Dates: start: 20150611, end: 20150616
  22. ROSUVASTATIN [Concomitant]
     Active Substance: ROSUVASTATIN
  23. CANCIDAS [Suspect]
     Active Substance: CASPOFUNGIN ACETATE
     Indication: ALVEOLITIS ALLERGIC
     Dosage: ROUTE - IV INFUSION
     Dates: start: 20150612, end: 20150616
  24. CEFTAZIDIME. [Concomitant]
     Active Substance: CEFTAZIDIME
  25. LASILIX [Suspect]
     Active Substance: FUROSEMIDE
     Route: 042
     Dates: start: 20150620, end: 20150623
  26. MIDAZOLAM [Concomitant]
     Active Substance: MIDAZOLAM\MIDAZOLAM HYDROCHLORIDE

REACTIONS (1)
  - Toxic skin eruption [Recovered/Resolved]

NARRATIVE: CASE EVENT DATE: 20150616
